FAERS Safety Report 4976167-3 (Version None)
Quarter: 2006Q2

REPORT INFORMATION
  Report Type: 
  Country: None (occurrence: None)
  Receive Date: 20060410
  Receipt Date: 20060331
  Transmission Date: 20061013
  Serious: Yes (Disabling)
  Sender: FDA-Public Use
  Company Number: DEWYE496922MAR06

PATIENT
  Age: 64 Year
  Sex: Female

DRUGS (15)
  1. RAPAMUNE [Suspect]
     Indication: PROPHYLAXIS AGAINST TRANSPLANT REJECTION
     Dosage: SEE IMAGE
     Dates: start: 20010626, end: 20010626
  2. RAPAMUNE [Suspect]
     Indication: PROPHYLAXIS AGAINST TRANSPLANT REJECTION
     Dosage: SEE IMAGE
     Dates: start: 20010627, end: 20020106
  3. RAPAMUNE [Suspect]
     Indication: PROPHYLAXIS AGAINST TRANSPLANT REJECTION
     Dosage: SEE IMAGE
     Dates: start: 20020107
  4. DECORTIN (PREDNISONE) [Concomitant]
  5. DIBLOCIN (DOXAZOSIN MESILATE) [Concomitant]
  6. FUROSEMIDE [Concomitant]
  7. BENZBROMARONE (BENZBROMARONE) [Concomitant]
  8. TRIDIN (CALCIUM CITRATE/CALCIUM GLUCONATE/SODIUM FLUOROPHOSPHATE) [Concomitant]
  9. EINSALPHA (ALFACALCIDOL) [Concomitant]
  10. ZOCOR [Concomitant]
  11. FAMOTIDINE [Concomitant]
  12. ERYTHROPOIETIN (ERYTHROPOIETIN) [Concomitant]
  13. DIGIMERCK  MINOR (DIGITOXIN) [Concomitant]
  14. FOLIC ACID [Concomitant]
  15. METOCLOPRAMIDE [Concomitant]

REACTIONS (2)
  - DIALYSIS [None]
  - TRANSPLANT FAILURE [None]
